FAERS Safety Report 4912841-2 (Version None)
Quarter: 2006Q1

REPORT INFORMATION
  Report Type: 
  Country: None (occurrence: None)
  Receive Date: 20060210
  Receipt Date: 20060201
  Transmission Date: 20060701
  Serious: Yes (Other)
  Sender: FDA-Public Use
  Company Number: B0408913A

PATIENT
  Sex: Male

DRUGS (2)
  1. PAXIL (PAROXETINE HYDROCHLORIDE) [Suspect]
     Indication: STRESS
     Dates: start: 20040908
  2. PAXIL [Suspect]
     Dosage: ORAL
     Route: 048

REACTIONS (3)
  - AGGRESSION [None]
  - DRUG DOSE OMISSION [None]
  - DRUG WITHDRAWAL SYNDROME [None]
